FAERS Safety Report 7818745-X (Version None)
Quarter: 2011Q4

REPORT INFORMATION
  Report Type: 
  Country: None (occurrence: None)
  Receive Date: 20111018
  Receipt Date: 20111006
  Transmission Date: 20120403
  Serious: No
  Sender: FDA-Public Use
  Company Number: US-BIOGENIDEC-2011BI038410

PATIENT
  Age: 30 Year
  Sex: Female

DRUGS (3)
  1. NUCYNTA [Concomitant]
     Indication: MYALGIA
  2. NUCYNTA [Concomitant]
     Indication: BACK PAIN
  3. TYSABRI [Suspect]
     Indication: MULTIPLE SCLEROSIS
     Route: 042
     Dates: start: 20110721

REACTIONS (4)
  - MYALGIA [None]
  - PAIN IN EXTREMITY [None]
  - URTICARIA [None]
  - MULTIPLE SCLEROSIS RELAPSE [None]
